FAERS Safety Report 6684823-4 (Version None)
Quarter: 2010Q2

REPORT INFORMATION
  Report Type: 
  Country: None (occurrence: None)
  Receive Date: 20100414
  Receipt Date: 20100331
  Transmission Date: 20101027
  Serious: Yes (Hospitalization)
  Sender: FDA-Public Use
  Company Number: 009582

PATIENT

DRUGS (1)
  1. LACOSAMIDE [Suspect]
     Dosage: (ORAL)
     Route: 048

REACTIONS (3)
  - DELIRIUM [None]
  - HALLUCINATION, VISUAL [None]
  - PSYCHOTIC DISORDER [None]
